FAERS Safety Report 9550401 (Version 1)
Quarter: 2013Q3

REPORT INFORMATION
  Report Type: Spontaneous
  Country: US (occurrence: US)
  Receive Date: 20130924
  Receipt Date: 20130924
  Transmission Date: 20140515
  Serious: No
  Sender: FDA-Public Use
  Company Number: US-SANOFI-AVENTIS-2013SA075912

PATIENT
  Age: 59 Year
  Sex: Female

DRUGS (7)
  1. AUBAGIO [Suspect]
     Indication: MULTIPLE SCLEROSIS
     Route: 048
     Dates: start: 20130620
  2. ZOLOFT [Concomitant]
  3. ASMANEX [Concomitant]
  4. GABAPENTIN [Concomitant]
  5. LAMICTAL [Concomitant]
  6. TIZANIDINE [Concomitant]
  7. OMEPRAZOLE [Concomitant]

REACTIONS (2)
  - Influenza like illness [Unknown]
  - Pruritus [Unknown]
